FAERS Safety Report 5468604-5 (Version None)
Quarter: 2007Q3

REPORT INFORMATION
  Report Type: 
  Country: None (occurrence: None)
  Receive Date: 20070926
  Receipt Date: 20070912
  Transmission Date: 20080115
  Serious: Yes (Death)
  Sender: FDA-Public Use
  Company Number: US-JNJFOC-20070903215

PATIENT
  Age: 19 Month
  Sex: Male
  Weight: 9.98 kg

DRUGS (2)
  1. ACETAMINOPHEN / CHLORPHENIRAMINE / DEXTROMETHORPHAN / PSEUDOEPHEDRINE [Suspect]
     Indication: DRUG USE FOR UNKNOWN INDICATION
     Dosage: UNKNOWN
  2. ACETAMINOPHEN /DEXTROMETHORPHAN HBR /DOXYLAMINE SUCCINATE [Suspect]
     Indication: DRUG USE FOR UNKNOWN INDICATION
     Dosage: UNKNOWN

REACTIONS (5)
  - CONTUSION [None]
  - DEHYDRATION [None]
  - DRUG TOXICITY [None]
  - HEPATIC NECROSIS [None]
  - HEPATIC STEATOSIS [None]
